FAERS Safety Report 19735295 (Version 1)
Quarter: 2021Q3

REPORT INFORMATION
  Report Type: Spontaneous
  Country: JP (occurrence: JP)
  Receive Date: 20210823
  Receipt Date: 20210823
  Transmission Date: 20211014
  Serious: Yes (Hospitalization, Other)
  Sender: FDA-Public Use
  Company Number: JP-LUPIN PHARMACEUTICALS INC.-2021-15559

PATIENT
  Age: 66 Year
  Sex: Male

DRUGS (5)
  1. LORAZEPAM. [Suspect]
     Active Substance: LORAZEPAM
     Dosage: 1 MILLIGRAM, QD
     Route: 065
  2. BLONANSERIN [Concomitant]
     Active Substance: BLONANSERIN
     Dosage: 40 MILLIGRAM, QD
     Route: 065
  3. LORAZEPAM. [Suspect]
     Active Substance: LORAZEPAM
     Dosage: 2 MILLIGRAM, QD
     Route: 065
  4. LORAZEPAM. [Suspect]
     Active Substance: LORAZEPAM
     Indication: CATATONIA
     Dosage: 3 MILLIGRAM, QD
     Route: 065
  5. BLONANSERIN [Concomitant]
     Active Substance: BLONANSERIN
     Indication: CATATONIA
     Dosage: 20 MILLIGRAM, QD
     Route: 065

REACTIONS (2)
  - Delirium [Recovering/Resolving]
  - Sedation complication [Recovering/Resolving]
